FAERS Safety Report 7145957-3 (Version None)
Quarter: 2010Q4

REPORT INFORMATION
  Report Type: 
  Country: None (occurrence: None)
  Receive Date: 20101208
  Receipt Date: 20101202
  Transmission Date: 20110411
  Serious: Yes (Life-Threatening, Hospitalization)
  Sender: FDA-Public Use
  Company Number: FI-ROCHE-746194

PATIENT
  Sex: Male

DRUGS (7)
  1. XELODA [Suspect]
     Route: 048
     Dates: start: 20100725, end: 20101119
  2. FRAGMIN [Concomitant]
     Indication: MESENTERIC VEIN THROMBOSIS
     Dosage: DRUG REPORTED AS FRAGMIN 2500 IU/ML.
     Route: 042
     Dates: start: 20100626
  3. EMCONCOR [Concomitant]
     Indication: HYPERTENSION
     Dosage: BISOPROLOL HEMIFUMARAS
     Route: 048
  4. ESCOR [Concomitant]
     Indication: HYPERTENSION
     Route: 048
  5. KERLON [Concomitant]
     Indication: HYPERTENSION
     Dosage: DRUG REPORTED AS BETAXOLOL HYDROCHLORIDE
     Route: 048
  6. OMEPRAZOLE [Concomitant]
     Dosage: DRUG REPORTED AS OMEPRAZOL COPYFARM.
     Route: 048
  7. LIPITOR [Concomitant]
     Route: 048

REACTIONS (8)
  - ANAEMIA [None]
  - ATRIAL FIBRILLATION [None]
  - CEREBRAL HAEMORRHAGE [None]
  - DIABETES MELLITUS [None]
  - FALL [None]
  - HYPOKALAEMIA [None]
  - LOSS OF CONSCIOUSNESS [None]
  - THROMBOCYTOPENIA [None]
